FAERS Safety Report 15090701 (Version 1)
Quarter: 2018Q2

REPORT INFORMATION
  Report Type: Spontaneous
  Country: CA (occurrence: CA)
  Receive Date: 20180629
  Receipt Date: 20180629
  Transmission Date: 20180711
  Serious: Yes (Hospitalization)
  Sender: FDA-Public Use
  Company Number: CA-TARO PHARMACEUTICALS USA.,INC-2018SUN00346

PATIENT
  Age: 26 Year
  Sex: Male

DRUGS (1)
  1. PHENYTOIN SODIUM. [Suspect]
     Active Substance: PHENYTOIN SODIUM
     Indication: EPILEPSY
     Dosage: UNK
     Route: 065

REACTIONS (6)
  - Toxic epidermal necrolysis [Unknown]
  - Symblepharon [Recovered/Resolved]
  - Corneal epithelium defect [Recovered/Resolved]
  - Conjunctival hyperaemia [Recovered/Resolved]
  - Conjunctival oedema [Recovered/Resolved]
  - Visual acuity reduced [Recovering/Resolving]
